FAERS Safety Report 10133573 (Version 1)
Quarter: 2014Q2

REPORT INFORMATION
  Report Type: Spontaneous
  Country: US (occurrence: US)
  Receive Date: 20140428
  Receipt Date: 20140428
  Transmission Date: 20141212
  Serious: Yes (Hospitalization)
  Sender: FDA-Public Use
  Company Number: US-GLAXOSMITHKLINE-A1070880A

PATIENT
  Age: 69 Year
  Sex: Female

DRUGS (16)
  1. BREO ELLIPTA [Suspect]
     Indication: CHRONIC OBSTRUCTIVE PULMONARY DISEASE
     Dosage: 1PUFF PER DAY
     Route: 055
     Dates: start: 201312
  2. SALBUTAMOL / IPRATROPIUM [Concomitant]
  3. DURAGESIC PATCH [Concomitant]
     Route: 061
  4. CEPHALEXIN [Concomitant]
     Dosage: 250MG UNKNOWN
  5. TAMSULOSIN [Concomitant]
     Dosage: .4MG UNKNOWN
  6. SUPER B COMPLEX [Concomitant]
  7. CARAFATE [Concomitant]
  8. ZYRTEC [Concomitant]
     Indication: MULTIPLE ALLERGIES
     Dosage: 10MG UNKNOWN
  9. NEXIUM [Concomitant]
     Dosage: 40MG TWICE PER DAY
  10. METOPROLOL [Concomitant]
     Dosage: 25MG TWICE PER DAY
  11. BIOTIN [Concomitant]
     Dosage: 5000MCG TWICE PER DAY
  12. NASONEX [Concomitant]
     Dosage: 50MCG SEE DOSAGE TEXT
  13. ALLOPURINOL [Concomitant]
     Indication: GOUT
     Dosage: 100MG TWICE PER DAY
  14. UNKNOWN MEDICATION [Concomitant]
     Dosage: 50MG PER DAY
  15. CLONAZEPAM [Concomitant]
     Dosage: 1MG THREE TIMES PER DAY
  16. ZOLPIDEM [Concomitant]

REACTIONS (1)
  - Dyspnoea [Unknown]
